FAERS Safety Report 10480992 (Version 1)
Quarter: 2014Q3

REPORT INFORMATION
  Report Type: Spontaneous
  Country: CO (occurrence: CO)
  Receive Date: 20140929
  Receipt Date: 20140929
  Transmission Date: 20150326
  Serious: Yes (Other)
  Sender: FDA-Public Use
  Company Number: CO-BAYER-2014-091418

PATIENT
  Age: 48 Year
  Sex: Female

DRUGS (1)
  1. MIRENA [Suspect]
     Active Substance: LEVONORGESTREL
     Dosage: 20 MCG/24HR, CONT
     Route: 015

REACTIONS (3)
  - Genital haemorrhage [Not Recovered/Not Resolved]
  - Endometrial hypertrophy [Not Recovered/Not Resolved]
  - Abdominal pain [Not Recovered/Not Resolved]
